FAERS Safety Report 12976762 (Version 1)
Quarter: 2016Q4

REPORT INFORMATION
  Report Type: Spontaneous
  Country: US (occurrence: US)
  Receive Date: 20161128
  Receipt Date: 20161128
  Transmission Date: 20170207
  Serious: Yes (Other)
  Sender: FDA-Public Use
  Company Number: PHEH2016US030474

PATIENT
  Age: 79 Year
  Sex: Female

DRUGS (1)
  1. SANDOSTATIN LAR DEPOT [Suspect]
     Active Substance: OCTREOTIDE ACETATE
     Indication: PANCREATIC NEUROENDOCRINE TUMOUR
     Dosage: 20 MG, UNK
     Route: 065
     Dates: start: 20140815, end: 201508

REACTIONS (26)
  - Metastatic lymphoma [Unknown]
  - Aortic valve incompetence [Unknown]
  - Mitral valve incompetence [Unknown]
  - Metastases to liver [Unknown]
  - Hepatic lesion [Unknown]
  - Dyspepsia [Unknown]
  - Hot flush [Unknown]
  - Ejection fraction decreased [Unknown]
  - Proctalgia [Unknown]
  - Abdominal pain [Unknown]
  - Drug intolerance [Unknown]
  - Drug ineffective [Unknown]
  - Ventricular hypokinesia [Unknown]
  - Malignant neoplasm progression [Unknown]
  - Depression [Unknown]
  - Oedema peripheral [Recovering/Resolving]
  - Contusion [Unknown]
  - Weight decreased [Unknown]
  - Dizziness [Unknown]
  - Hyperhomocysteinaemia [Unknown]
  - Tenderness [Unknown]
  - Abdominal distension [Unknown]
  - Diarrhoea [Recovering/Resolving]
  - Flatulence [Unknown]
  - Pulmonary hypertension [Unknown]
  - Tricuspid valve incompetence [Unknown]

NARRATIVE: CASE EVENT DATE: 20150112
